FAERS Safety Report 5917579-0 (Version None)
Quarter: 2008Q4

REPORT INFORMATION
  Report Type: 
  Country: None (occurrence: None)
  Receive Date: 20081009
  Receipt Date: 20080926
  Transmission Date: 20090506
  Serious: Yes (Disabling)
  Sender: FDA-Public Use
  Company Number: BEP08000005

PATIENT
  Age: 60 Year
  Sex: Female
  Weight: 60 kg

DRUGS (4)
  1. ACTONEL [Suspect]
     Indication: SCOLIOSIS
     Dosage: 35 MG
  2. TENORETIC 100 [Concomitant]
  3. VITAMINS NOS (VITAMINS NOS) [Concomitant]
  4. SELENIUM-ACE (ASCORBIC ACID, RETINOL, SELENIUM, TOCOPHEROL) [Concomitant]

REACTIONS (2)
  - DYSGEUSIA [None]
  - TOOTH DISORDER [None]
